FAERS Safety Report 13795260 (Version 1)
Quarter: 2017Q3

REPORT INFORMATION
  Report Type: Spontaneous
  Country: US (occurrence: US)
  Receive Date: 20170726
  Receipt Date: 20170726
  Transmission Date: 20171127
  Serious: No
  Sender: FDA-Public Use
  Company Number: US-STRIDES ARCOLAB LIMITED-2017SP008273

PATIENT

DRUGS (1)
  1. MYCOPHENOLATE MOFETIL. [Suspect]
     Active Substance: MYCOPHENOLATE MOFETIL
     Indication: NEUROMYELITIS OPTICA SPECTRUM DISORDER
     Dosage: UNK, UNKNOWN
     Route: 065

REACTIONS (8)
  - Alopecia [Unknown]
  - Anxiety [Unknown]
  - Off label use [Unknown]
  - Contusion [Unknown]
  - Headache [Unknown]
  - Constipation [Unknown]
  - Abdominal pain [Unknown]
  - Diarrhoea [Unknown]
